FAERS Safety Report 6394778-8 (Version None)
Quarter: 2009Q4

REPORT INFORMATION
  Report Type: 
  Country: None (occurrence: None)
  Receive Date: 20091009
  Receipt Date: 20090819
  Transmission Date: 20100525
  Serious: No
  Sender: FDA-Public Use
  Company Number: US-BAYER-200930788NA

PATIENT
  Age: 41 Year
  Sex: Female

DRUGS (2)
  1. MIRENA [Suspect]
     Indication: CONTRACEPTION
     Route: 015
     Dates: start: 20090612
  2. COMBIRX [Concomitant]
     Indication: MULTIPLE SCLEROSIS

REACTIONS (2)
  - ABDOMINAL PAIN [None]
  - OVARIAN CYST [None]
